FAERS Safety Report 12299398 (Version 1)
Quarter: 2016Q2

REPORT INFORMATION
  Report Type: Report from Study
  Country: CA (occurrence: CA)
  Receive Date: 20160425
  Receipt Date: 20160425
  Transmission Date: 20160815
  Serious: Yes (Other)
  Sender: FDA-Public Use
  Company Number: CA-ROCHE-1390737

PATIENT
  Age: 74 Year
  Sex: Female

DRUGS (23)
  1. OXAZEPAM. [Concomitant]
     Active Substance: OXAZEPAM
  2. JANUVIA [Concomitant]
     Active Substance: SITAGLIPTIN PHOSPHATE
  3. DIPHENHYDRAMINE HCL [Concomitant]
     Active Substance: DIPHENHYDRAMINE HYDROCHLORIDE
     Indication: PREMEDICATION
     Route: 048
     Dates: start: 20130604, end: 20131205
  4. PLAQUENIL [Concomitant]
     Active Substance: HYDROXYCHLOROQUINE SULFATE
  5. METHYLPREDNISOLONE. [Concomitant]
     Active Substance: METHYLPREDNISOLONE
     Indication: PREMEDICATION
     Route: 042
     Dates: start: 20130704, end: 20131205
  6. RITUXAN [Suspect]
     Active Substance: RITUXIMAB
     Indication: RHEUMATOID ARTHRITIS
     Route: 042
     Dates: start: 20130604, end: 20131205
  7. GLYBURIDE. [Concomitant]
     Active Substance: GLYBURIDE
  8. PANTOLOC [Concomitant]
     Active Substance: PANTOPRAZOLE SODIUM
  9. ACTEMRA [Suspect]
     Active Substance: TOCILIZUMAB
     Indication: RHEUMATOID ARTHRITIS
     Route: 058
     Dates: start: 201411, end: 2016
  10. ACTEMRA [Suspect]
     Active Substance: TOCILIZUMAB
     Route: 058
     Dates: start: 201507
  11. ACETAMINOPHEN. [Concomitant]
     Active Substance: ACETAMINOPHEN
     Indication: PREMEDICATION
     Route: 048
     Dates: start: 20130604, end: 20131205
  12. METHOTREXATE [Concomitant]
     Active Substance: METHOTREXATE
  13. NAPROXEN. [Concomitant]
     Active Substance: NAPROXEN
  14. PREGABALIN. [Concomitant]
     Active Substance: PREGABALIN
  15. FOLIC ACID. [Concomitant]
     Active Substance: FOLIC ACID
  16. VOLTAREN [Concomitant]
     Active Substance: DICLOFENAC SODIUM
  17. ORENCIA [Suspect]
     Active Substance: ABATACEPT
     Indication: RHEUMATOID ARTHRITIS
     Route: 065
     Dates: start: 2014
  18. CYCLOBENZAPRINE [Concomitant]
     Active Substance: CYCLOBENZAPRINE
  19. SYNTHROID [Concomitant]
     Active Substance: LEVOTHYROXINE SODIUM
  20. IRBESARTAN. [Concomitant]
     Active Substance: IRBESARTAN
  21. METFORMIN [Concomitant]
     Active Substance: METFORMIN HYDROCHLORIDE
  22. SULFASALAZINE. [Concomitant]
     Active Substance: SULFASALAZINE
     Route: 065
  23. ASAPHEN [Concomitant]
     Active Substance: ASPIRIN

REACTIONS (5)
  - Drug ineffective [Unknown]
  - Blood creatinine increased [Unknown]
  - Renal impairment [Not Recovered/Not Resolved]
  - Hepatic enzyme increased [Not Recovered/Not Resolved]
  - Pain in extremity [Not Recovered/Not Resolved]

NARRATIVE: CASE EVENT DATE: 20150412
